FAERS Safety Report 16464549 (Version 1)
Quarter: 2019Q2

REPORT INFORMATION
  Report Type: Spontaneous
  Country: US (occurrence: US)
  Receive Date: 20190621
  Receipt Date: 20190621
  Transmission Date: 20190711
  Serious: Yes (Other)
  Sender: FDA-Public Use
  Company Number: PHHY2019US140479

PATIENT
  Age: 56 Year
  Sex: Female

DRUGS (1)
  1. HYDROXYCHLOROQUINE [Suspect]
     Active Substance: HYDROXYCHLOROQUINE
     Indication: AUTOIMMUNE DISORDER
     Dosage: UNK
     Route: 065

REACTIONS (12)
  - Skin plaque [Unknown]
  - Rash [Recovering/Resolving]
  - Pyrexia [Unknown]
  - Face oedema [Unknown]
  - Chills [Unknown]
  - Transaminases increased [Unknown]
  - Lymphadenopathy [Unknown]
  - Epstein-Barr virus infection [Unknown]
  - Papule [Unknown]
  - Skin exfoliation [Unknown]
  - Drug reaction with eosinophilia and systemic symptoms [Unknown]
  - Eosinophilia [Unknown]
